FAERS Safety Report 5366679-5 (Version None)
Quarter: 2007Q2

REPORT INFORMATION
  Report Type: 
  Country: None (occurrence: None)
  Receive Date: 20070622
  Receipt Date: 20060518
  Transmission Date: 20071010
  Serious: No
  Sender: FDA-Public Use
  Company Number: US-ASTRAZENECA-2006UW10030

PATIENT
  Age: 29 Year
  Sex: Female
  Weight: 108.9 kg

DRUGS (6)
  1. RHINOCORT [Suspect]
     Indication: SINUS HEADACHE
     Route: 045
     Dates: start: 20060401
  2. RHINOCORT [Suspect]
     Indication: SEASONAL ALLERGY
     Route: 045
     Dates: start: 20060401
  3. ALLEGRA [Concomitant]
  4. WELCHOL [Concomitant]
  5. ATIVAN [Concomitant]
  6. KEFLEX [Concomitant]

REACTIONS (1)
  - BLOOD URINE PRESENT [None]
